FAERS Safety Report 6655302-5 (Version None)
Quarter: 2010Q1

REPORT INFORMATION
  Report Type: 
  Country: None (occurrence: None)
  Receive Date: 20100324
  Receipt Date: 20100308
  Transmission Date: 20100710
  Serious: Yes (Hospitalization)
  Sender: FDA-Public Use
  Company Number: IDR-00356

PATIENT
  Age: 70 Year
  Sex: Male

DRUGS (4)
  1. PROPRANOLOL [Suspect]
     Dosage: 160 MG ORAL FORMULATION; CAPSULE CONTR REL
     Route: 048
     Dates: start: 20091211, end: 20091215
  2. ALDACTONE [Suspect]
     Dosage: 75 MG ORAL FORMULATION: TABLET
     Route: 048
     Dates: start: 20091001, end: 20091215
  3. NEXIUM [Concomitant]
  4. ALDALIX (FUROSEMIDE, SPIRONOLACTONE) [Concomitant]

REACTIONS (8)
  - BRADYCARDIA [None]
  - CONFUSIONAL STATE [None]
  - DIARRHOEA [None]
  - HYPERKALAEMIA [None]
  - HYPONATRAEMIA [None]
  - HYPOTENSION [None]
  - MALAISE [None]
  - RENAL FAILURE ACUTE [None]
